FAERS Safety Report 17494508 (Version 3)
Quarter: 2021Q1

REPORT INFORMATION
  Report Type: Spontaneous
  Country: NL (occurrence: NL)
  Receive Date: 20200304
  Receipt Date: 20210208
  Transmission Date: 20210419
  Serious: Yes (Other)
  Sender: FDA-Public Use
  Company Number: NL-MYLANLABS-2020M1012148

PATIENT
  Age: 11 Year
  Sex: Male

DRUGS (8)
  1. FLUCLOXACILLIN [Interacting]
     Active Substance: FLUCLOXACILLIN
     Indication: BACTERIAL PYELONEPHRITIS
  2. EVEROLIMUS. [Suspect]
     Active Substance: EVEROLIMUS
     Indication: PYELONEPHRITIS
     Dosage: STARTED ON DAY ?24
     Route: 065
  3. EVEROLIMUS. [Interacting]
     Active Substance: EVEROLIMUS
     Indication: IMMUNOSUPPRESSION
     Dosage: DOSE INCREASED ON DAY 7
     Route: 065
  4. FLUCLOXACILLIN [Interacting]
     Active Substance: FLUCLOXACILLIN
     Indication: PYELONEPHRITIS
     Dosage: 2 GRAM, QD
     Route: 048
  5. EVEROLIMUS. [Interacting]
     Active Substance: EVEROLIMUS
     Indication: IMMUNOSUPPRESSANT DRUG THERAPY
  6. PREDNISOLONE. [Concomitant]
     Active Substance: PREDNISOLONE
     Indication: IMMUNOSUPPRESSANT DRUG THERAPY
     Dosage: UNK
  7. TACROLIMUS. [Interacting]
     Active Substance: TACROLIMUS
     Indication: IMMUNOSUPPRESSION
     Dosage: STARTED ON DAY ?7
     Route: 065
  8. TACROLIMUS. [Interacting]
     Active Substance: TACROLIMUS
     Indication: IMMUNOSUPPRESSANT DRUG THERAPY
     Dosage: DOSE INCREASED ON DAY 7
     Route: 065

REACTIONS (2)
  - Drug interaction [Recovered/Resolved]
  - Immunosuppressant drug level decreased [Recovered/Resolved]
